FAERS Safety Report 7450183-4 (Version None)
Quarter: 2011Q2

REPORT INFORMATION
  Report Type: 
  Country: None (occurrence: None)
  Receive Date: 20110502
  Receipt Date: 20110426
  Transmission Date: 20111010
  Serious: No
  Sender: FDA-Public Use
  Company Number: US-PFIZER INC-2005085391

PATIENT
  Sex: Male
  Weight: 77.098 kg

DRUGS (4)
  1. ASPIRIN [Concomitant]
  2. NIACIN [Concomitant]
     Indication: BLOOD CHOLESTEROL INCREASED
  3. LIBRIUM [Concomitant]
     Indication: GENERALISED ANXIETY DISORDER
  4. VIAGRA [Suspect]
     Indication: ERECTILE DYSFUNCTION
     Dosage: 100 MG, ALTERNATE DAY
     Route: 048

REACTIONS (2)
  - DRUG INEFFECTIVE [None]
  - FRUSTRATION [None]
